FAERS Safety Report 6658402-9 (Version None)
Quarter: 2010Q1

REPORT INFORMATION
  Report Type: 
  Country: None (occurrence: None)
  Receive Date: 20100330
  Receipt Date: 20100302
  Transmission Date: 20100710
  Serious: No
  Sender: FDA-Public Use
  Company Number: US-BIOGENIDEC-2010BI007241

PATIENT
  Age: 46 Year
  Sex: Male

DRUGS (3)
  1. TYSABRI [Suspect]
     Indication: MULTIPLE SCLEROSIS
     Route: 042
     Dates: start: 20090810, end: 20091008
  2. AVONEX [Concomitant]
     Route: 030
     Dates: start: 19991101, end: 20000601
  3. AVONEX [Concomitant]
     Route: 030
     Dates: start: 20000901

REACTIONS (3)
  - BALANCE DISORDER [None]
  - DRUG INEFFECTIVE [None]
  - GAIT DISTURBANCE [None]
